FAERS Safety Report 15196980 (Version 8)
Quarter: 2020Q1

REPORT INFORMATION
  Report Type: Spontaneous
  Country: US (occurrence: US)
  Receive Date: 20180725
  Receipt Date: 20200204
  Transmission Date: 20200409
  Serious: Yes (Life-Threatening, Hospitalization, Other)
  Sender: FDA-Public Use
  Company Number: US-JNJFOC-20180716062

PATIENT
  Age: 47 Year
  Sex: Female
  Weight: 59.02 kg

DRUGS (2)
  1. DURAGESIC [Suspect]
     Active Substance: FENTANYL
     Indication: PAIN MANAGEMENT
     Route: 062
     Dates: start: 2002
  2. DURAGESIC [Suspect]
     Active Substance: FENTANYL
     Route: 062
     Dates: start: 200310

REACTIONS (29)
  - Vomiting [Unknown]
  - Hyperhidrosis [Not Recovered/Not Resolved]
  - Withdrawal syndrome [Not Recovered/Not Resolved]
  - Rhinorrhoea [Unknown]
  - Burning sensation [Unknown]
  - Nephrolithiasis [Unknown]
  - Pyelonephritis acute [Unknown]
  - Exposure during pregnancy [Unknown]
  - Visual impairment [Unknown]
  - Malaise [Not Recovered/Not Resolved]
  - Crush injury [Unknown]
  - Feeling cold [Not Recovered/Not Resolved]
  - Road traffic accident [Unknown]
  - Cerebral disorder [Unknown]
  - Drug ineffective [Unknown]
  - Infection [Unknown]
  - Product dose omission [Unknown]
  - Meningitis [Unknown]
  - Gait disturbance [Not Recovered/Not Resolved]
  - Aphasia [Unknown]
  - Head injury [Unknown]
  - Arachnoiditis [Unknown]
  - Emergency care [Unknown]
  - Musculoskeletal chest pain [Unknown]
  - Pharyngeal disorder [Unknown]
  - Seizure [Unknown]
  - Hepatic mass [Unknown]
  - Road traffic accident [Unknown]
  - Drug abuse [Unknown]

NARRATIVE: CASE EVENT DATE: 2007
